FAERS Safety Report 6921866-7 (Version None)
Quarter: 2010Q3

REPORT INFORMATION
  Report Type: 
  Country: None (occurrence: None)
  Receive Date: 20100812
  Receipt Date: 20100806
  Transmission Date: 20110219
  Serious: Yes (Death)
  Sender: FDA-Public Use
  Company Number: JP-RB-012942-10

PATIENT
  Sex: Female

DRUGS (11)
  1. LEPETAN INJECTION [Suspect]
     Indication: ARTERIOSCLEROSIS OBLITERANS
     Dosage: 4 TO 6 TIMES DAILY
     Route: 042
     Dates: start: 20020701, end: 20100421
  2. LEPETAN INJECTION [Suspect]
     Indication: ABDOMINAL PAIN
     Dosage: 4 TO 6 TIMES DAILY
     Route: 042
     Dates: start: 20020701, end: 20100421
  3. CILOSTAZOL [Concomitant]
     Indication: PRODUCT USED FOR UNKNOWN INDICATION
     Dosage: UNKOWN DOSING DETIALS
     Route: 065
     Dates: start: 20020401
  4. ADRENOCORTICAL HORMONE PREPARATIONS [Concomitant]
     Indication: PRODUCT USED FOR UNKNOWN INDICATION
     Dosage: UNKNOWN DOSING DETAILS
     Route: 065
     Dates: start: 19740101
  5. WARFARIN POTASSIUM [Concomitant]
     Indication: PRODUCT USED FOR UNKNOWN INDICATION
     Dosage: UNKNOWN DOSING DETAILS
     Route: 065
     Dates: start: 20020401
  6. PEROSPIRONE HYDROCHLORIDE HYDRATE [Concomitant]
     Indication: PRODUCT USED FOR UNKNOWN INDICATION
     Route: 065
     Dates: start: 20060707
  7. ETHYL LOFLAZEPATE [Concomitant]
     Indication: PRODUCT USED FOR UNKNOWN INDICATION
     Route: 065
     Dates: start: 20060707, end: 20061012
  8. MILNACIPRAN HYDROCHLORIDE [Concomitant]
     Indication: PRODUCT USED FOR UNKNOWN INDICATION
     Route: 065
     Dates: start: 20060915
  9. CLONAZEPAM [Concomitant]
     Indication: PRODUCT USED FOR UNKNOWN INDICATION
     Route: 065
     Dates: start: 20061013
  10. BROMAZEPAM [Concomitant]
     Indication: PRODUCT USED FOR UNKNOWN INDICATION
     Dosage: UNKNOWN EXACT DOSE, TOOK IT PRN
     Route: 065
     Dates: start: 20070629
  11. FENTANYL CITRATE [Concomitant]
     Indication: PRODUCT USED FOR UNKNOWN INDICATION
     Dosage: 0.5ML TO 1ML DAILY
     Route: 065
     Dates: start: 20100416

REACTIONS (2)
  - DEPENDENCE [None]
  - GASTROINTESTINAL NECROSIS [None]
